FAERS Safety Report 7855113-9 (Version None)
Quarter: 2011Q4

REPORT INFORMATION
  Report Type: 
  Country: None (occurrence: None)
  Receive Date: 20111026
  Receipt Date: 20111018
  Transmission Date: 20120403
  Serious: Yes (Other)
  Sender: FDA-Public Use
  Company Number: PHHY2011IN91616

PATIENT
  Age: 60 Year
  Sex: Female

DRUGS (1)
  1. ZOLEDRONOC ACID [Suspect]
     Dosage: 5 MG/100ML
     Route: 042
     Dates: start: 20110126

REACTIONS (7)
  - OSTEOPOROTIC FRACTURE [None]
  - OEDEMA PERIPHERAL [None]
  - JOINT SWELLING [None]
  - CONTUSION [None]
  - ARTHRALGIA [None]
  - FALL [None]
  - ANKLE FRACTURE [None]
